FAERS Safety Report 5324092-0 (Version None)
Quarter: 2007Q2

REPORT INFORMATION
  Report Type: 
  Country: None (occurrence: None)
  Receive Date: 20070514
  Receipt Date: 20060412
  Transmission Date: 20071010
  Serious: No
  Sender: FDA-Public Use
  Company Number: A0601559A

PATIENT
  Age: 61 Year
  Sex: Male

DRUGS (2)
  1. NABUMETONE [Suspect]
     Indication: ARTHRITIS
     Dosage: 500MG TWICE PER DAY
     Route: 048
     Dates: start: 20050101, end: 20050101
  2. RELAFEN [Concomitant]
     Indication: ARTHRITIS
     Route: 048

REACTIONS (1)
  - DRUG INEFFECTIVE [None]
